FAERS Safety Report 13191162 (Version 1)
Quarter: 2017Q1

REPORT INFORMATION
  Report Type: Spontaneous
  Country: CA (occurrence: CA)
  Receive Date: 20170207
  Receipt Date: 20170207
  Transmission Date: 20170428
  Serious: Yes (Hospitalization)
  Sender: FDA-Public Use
  Company Number: CA-SCIEGEN PHARMACEUTICALS INC-2017SCILIT00034

PATIENT
  Age: 72 Year
  Sex: Male

DRUGS (2)
  1. HYDROCHLOROTHIAZIDE TABLETS [Suspect]
     Active Substance: HYDROCHLOROTHIAZIDE
     Indication: HYPERTENSION
     Dosage: 12.5 MG, QD
     Route: 065
  2. LITHIUM MONOTHERAPHY [Concomitant]
     Indication: BIPOLAR DISORDER
     Dosage: 900 MG, QD (NIGHT)
     Route: 065

REACTIONS (4)
  - Dysarthria [Recovered/Resolved]
  - Acute kidney injury [Recovered/Resolved]
  - Gait disturbance [Recovered/Resolved]
  - Somnolence [Recovered/Resolved]
